FAERS Safety Report 6410576-0 (Version None)
Quarter: 2009Q4

REPORT INFORMATION
  Report Type: 
  Country: None (occurrence: None)
  Receive Date: 20091022
  Receipt Date: 20091012
  Transmission Date: 20100525
  Serious: Yes (Other)
  Sender: FDA-Public Use
  Company Number: MW-GILEAD-2009-0024746

PATIENT
  Age: 27 Year
  Sex: Female

DRUGS (2)
  1. TRUVADA [Suspect]
     Indication: HIV INFECTION
     Dates: start: 20080518
  2. EFAVIRENZ [Suspect]
     Indication: HIV INFECTION
     Dates: start: 20080518

REACTIONS (1)
  - ABORTION SPONTANEOUS [None]
